FAERS Safety Report 10237381 (Version 2)
Quarter: 2014Q2

REPORT INFORMATION
  Report Type: Spontaneous
  Country: GB (occurrence: GB)
  Receive Date: 20140614
  Receipt Date: 20140614
  Transmission Date: 20141212
  Serious: Yes (Life-Threatening, Hospitalization, Other)
  Sender: FDA-Public Use
  Company Number: GB-ABBVIE-14P-167-1230957-00

PATIENT
  Age: 7 Month
  Sex: Male
  Weight: 8.16 kg

DRUGS (6)
  1. SYNAGIS [Suspect]
     Indication: PRODUCT USED FOR UNKNOWN INDICATION
     Route: 030
     Dates: start: 20131010, end: 20131010
  2. SYNAGIS [Suspect]
     Dosage: IMMEDIATELY (STAT)
     Route: 030
     Dates: start: 20131107, end: 20131107
  3. SYNAGIS [Suspect]
     Route: 030
     Dates: start: 20131202, end: 20131202
  4. SYNAGIS [Suspect]
     Route: 030
     Dates: start: 20131230, end: 20131230
  5. SYNAGIS [Suspect]
     Route: 030
     Dates: start: 20140127, end: 20140127
  6. OMEPRAZOLE [Concomitant]
     Indication: PRODUCT USED FOR UNKNOWN INDICATION
     Dosage: FREQUENCY TEXT: BD
     Route: 048

REACTIONS (4)
  - Respiratory syncytial virus infection [Recovered/Resolved]
  - Mechanical ventilation [Recovered/Resolved]
  - Gastrostomy [Unknown]
  - Oxygen saturation abnormal [Recovered/Resolved]
